FAERS Safety Report 6632322-8 (Version None)
Quarter: 2010Q1

REPORT INFORMATION
  Report Type: 
  Country: None (occurrence: None)
  Receive Date: 20100312
  Receipt Date: 20100301
  Transmission Date: 20100710
  Serious: Yes (Other)
  Sender: FDA-Public Use
  Company Number: B0637011A

PATIENT
  Sex: Male

DRUGS (3)
  1. BECONASE [Suspect]
     Indication: ILL-DEFINED DISORDER
     Dosage: 2PUFF TWICE PER DAY
     Route: 045
     Dates: start: 20081001
  2. ALLOPURINOL [Concomitant]
     Indication: GOUT
     Route: 065
  3. PARACETAMOL [Concomitant]
     Indication: PAIN
     Route: 065

REACTIONS (2)
  - INTENTIONAL OVERDOSE [None]
  - PRODUCT QUALITY ISSUE [None]
